FAERS Safety Report 25829497 (Version 1)
Quarter: 2025Q3

REPORT INFORMATION
  Report Type: Spontaneous
  Country: GB (occurrence: GB)
  Receive Date: 20250922
  Receipt Date: 20250922
  Transmission Date: 20251021
  Serious: Yes (Death, Hospitalization, Other)
  Sender: AMNEAL
  Company Number: GB-AMNEAL PHARMACEUTICALS-2025-AMRX-03562

PATIENT
  Age: 7 Decade
  Sex: Male

DRUGS (1)
  1. CAPECITABINE [Suspect]
     Active Substance: CAPECITABINE
     Indication: Colon cancer stage II
     Dosage: 2500 MILLIGRAM (1000MG/SQ M WHICH WAS EQUIVALENT TO  2500MG BD), BID (14 DAYS IN 21 DAY CYCLE FOR 6
     Route: 065
     Dates: start: 20221018, end: 20221103

REACTIONS (10)
  - Intestinal ischaemia [Fatal]
  - Colitis [Fatal]
  - Toxicity to various agents [Fatal]
  - Tachypnoea [Unknown]
  - Hypoxia [Unknown]
  - Lip ulceration [Unknown]
  - Dry skin [Unknown]
  - Atrial fibrillation [Unknown]
  - Tachycardia [Unknown]
  - Rash [Unknown]

NARRATIVE: CASE EVENT DATE: 20221028
